FAERS Safety Report 25900096 (Version 1)
Quarter: 2025Q4

REPORT INFORMATION
  Report Type: Spontaneous
  Country: JP (occurrence: JP)
  Receive Date: 20251009
  Receipt Date: 20251009
  Transmission Date: 20260117
  Serious: Yes (Hospitalization, Other)
  Sender: ROCHE
  Company Number: JP-CHUGAI-2025031153

PATIENT
  Sex: Female

DRUGS (1)
  1. ACTEMRA [Suspect]
     Active Substance: TOCILIZUMAB
     Indication: Giant cell arteritis
     Dosage: ONCE/2WEEKS
     Route: 058
     Dates: start: 2024

REACTIONS (8)
  - Aneurysm [Unknown]
  - Pneumonia [Recovered/Resolved]
  - Apathy [Unknown]
  - Dysuria [Unknown]
  - Asthenia [Unknown]
  - Visual impairment [Unknown]
  - Decreased appetite [Unknown]
  - Off label use [Unknown]

NARRATIVE: CASE EVENT DATE: 20240101
